FAERS Safety Report 17808207 (Version 1)
Quarter: 2020Q2

REPORT INFORMATION
  Report Type: Spontaneous
  Country: JP (occurrence: JP)
  Receive Date: 20200520
  Receipt Date: 20200520
  Transmission Date: 20200714
  Serious: Yes (Hospitalization)
  Sender: FDA-Public Use
  Company Number: JP-EISAI MEDICAL RESEARCH-EC-2020-072414

PATIENT
  Age: 59 Year
  Sex: Male

DRUGS (1)
  1. LENVIMA [Suspect]
     Active Substance: LENVATINIB
     Indication: FOLLICULAR THYROID CANCER
     Route: 048
     Dates: start: 20200228, end: 20200505

REACTIONS (4)
  - Brain oedema [Unknown]
  - Intracranial tumour haemorrhage [Unknown]
  - Myalgia [Unknown]
  - Grip strength decreased [Unknown]

NARRATIVE: CASE EVENT DATE: 2020
